FAERS Safety Report 8318550-4 (Version None)
Quarter: 2012Q2

REPORT INFORMATION
  Report Type: 
  Country: None (occurrence: None)
  Receive Date: 20120427
  Receipt Date: 20120417
  Transmission Date: 20120825
  Serious: Yes (Hospitalization)
  Sender: FDA-Public Use
  Company Number: IT-ELI_LILLY_AND_COMPANY-IT201203008221

PATIENT
  Sex: Male

DRUGS (11)
  1. METFORMIN HCL [Concomitant]
     Indication: DIABETES MELLITUS
     Dosage: 1850 UNK, UNK
  2. AMLODIPINE [Concomitant]
     Dosage: UNK, UNKNOWN
  3. DIUREMID [Concomitant]
     Dosage: 10 MG, UNK
  4. FOLINA [Concomitant]
     Dosage: 5 MG, UNK
  5. ZOFRAN [Concomitant]
     Dosage: 4 MG, UNK
  6. GEMZAR [Suspect]
     Indication: PLEURAL MESOTHELIOMA MALIGNANT
     Dosage: 1850 MG, UNKNOWN
     Route: 042
     Dates: start: 20120324, end: 20120324
  7. ASPIRIN [Concomitant]
     Dosage: 100 MG, UNK
  8. OMEPRAZOLE [Concomitant]
     Dosage: 20 MG, UNK
  9. SIMVASTATIN [Concomitant]
     Dosage: UNK, UNKNOWN
  10. METOPROLOL TARTRATE [Concomitant]
     Dosage: UNK, UNKNOWN
  11. MONOCINQUE [Concomitant]
     Dosage: 80 MG, UNK

REACTIONS (3)
  - MYALGIA [None]
  - PYREXIA [None]
  - ARTHRALGIA [None]
